FAERS Safety Report 6022614-8 (Version None)
Quarter: 2008Q4

REPORT INFORMATION
  Report Type: 
  Country: None (occurrence: None)
  Receive Date: 20081230
  Receipt Date: 20081224
  Transmission Date: 20090506
  Serious: Yes (Hospitalization)
  Sender: FDA-Public Use
  Company Number: FR-JNJFOC-20081002290

PATIENT
  Age: 75 Year
  Sex: Female

DRUGS (10)
  1. TAVANIC [Suspect]
     Indication: SEPSIS
     Route: 048
     Dates: start: 20080826, end: 20080830
  2. CLAFORAN [Suspect]
     Indication: INTERVERTEBRAL DISCITIS
     Route: 042
  3. CLAFORAN [Suspect]
     Indication: LIVER ABSCESS
     Route: 042
  4. CLAFORAN [Suspect]
     Indication: SEPSIS
     Route: 042
  5. GENTAMICIN [Concomitant]
     Indication: SEPSIS
     Route: 042
  6. VALSARTAN [Concomitant]
     Indication: HYPERTENSION
     Route: 065
  7. MOPRAL [Concomitant]
     Route: 065
  8. DIFFU K [Concomitant]
     Route: 065
  9. ALLOPURINOL [Concomitant]
     Route: 065
  10. VOLTAREN [Concomitant]
     Route: 065

REACTIONS (2)
  - NEUTROPENIA [None]
  - SURGERY [None]
